FAERS Safety Report 13467789 (Version 4)
Quarter: 2017Q3

REPORT INFORMATION
  Report Type: Spontaneous
  Country: JP (occurrence: JP)
  Receive Date: 20170421
  Receipt Date: 20170815
  Transmission Date: 20171127
  Serious: Yes (Death, Hospitalization, Other)
  Sender: FDA-Public Use
  Company Number: JP-GILEAD-2017-0264688

PATIENT
  Age: 90 Year

DRUGS (1)
  1. AMBRISENTAN [Suspect]
     Active Substance: AMBRISENTAN
     Indication: PULMONARY ARTERIAL HYPERTENSION
     Dosage: UNK, QD
     Route: 048

REACTIONS (8)
  - Femur fracture [Not Recovered/Not Resolved]
  - Marasmus [Fatal]
  - Feeding disorder [Fatal]
  - Fall [Unknown]
  - Multiple organ dysfunction syndrome [Fatal]
  - Urinary tract infection [Fatal]
  - Dehydration [Fatal]
  - Asthenia [Fatal]

NARRATIVE: CASE EVENT DATE: 20170308
